FAERS Safety Report 5678056-8 (Version None)
Quarter: 2008Q1

REPORT INFORMATION
  Report Type: 
  Country: None (occurrence: None)
  Receive Date: 20080324
  Receipt Date: 20080324
  Transmission Date: 20080703
  Serious: Yes (Hospitalization)
  Sender: FDA-Public Use
  Company Number: None

PATIENT
  Age: 65 Year
  Sex: Female
  Weight: 67.3 kg

DRUGS (1)
  1. CLOFARABINE [Suspect]
     Indication: LYMPHOMA
     Dosage: 4MG/M2 QD X 5 DAYS IV 3 MG/M2 QD X 5 DAYS IV
     Route: 042
     Dates: start: 20080211, end: 20080215

REACTIONS (6)
  - ANAEMIA [None]
  - DRUG TOXICITY [None]
  - HAEMATOTOXICITY [None]
  - NEUTROPENIA [None]
  - RENAL FAILURE [None]
  - THROMBOCYTOPENIA [None]
